FAERS Safety Report 4804316-6 (Version None)
Quarter: 2005Q4

REPORT INFORMATION
  Report Type: 
  Country: None (occurrence: None)
  Receive Date: 20051017
  Receipt Date: 20050930
  Transmission Date: 20060501
  Serious: Yes (Death, Other)
  Sender: FDA-Public Use
  Company Number: 12656

PATIENT
  Age: 50 Year
  Sex: Male

DRUGS (3)
  1. DIAZEPAM [Suspect]
  2. FENTANYL [Suspect]
  3. HALOPERIDOL [Suspect]

REACTIONS (5)
  - ACUTE RESPIRATORY DISTRESS SYNDROME [None]
  - ASPIRATION [None]
  - MYOGLOBINURIA [None]
  - PLATELET COUNT DECREASED [None]
  - RESPIRATORY ARREST [None]
